FAERS Safety Report 24018993 (Version 2)
Quarter: 2025Q4

REPORT INFORMATION
  Report Type: Spontaneous
  Country: US (occurrence: US)
  Receive Date: 20240627
  Receipt Date: 20251219
  Transmission Date: 20260118
  Serious: No
  Sender: SANOFI AVENTIS
  Company Number: US-SA-SAC20240621000238

PATIENT
  Age: 63 Year
  Sex: Male

DRUGS (2)
  1. DUPIXENT [Suspect]
     Active Substance: DUPILUMAB
     Indication: Eczema
     Dosage: 600 MG, 1X
     Route: 058
     Dates: start: 20240404, end: 20240404
  2. DUPIXENT [Suspect]
     Active Substance: DUPILUMAB
     Indication: Eczema nummular
     Dosage: 300 MG, QOW
     Route: 058
     Dates: start: 202404

REACTIONS (3)
  - Skin discolouration [Recovered/Resolved]
  - Eye swelling [Recovered/Resolved]
  - Swelling face [Recovered/Resolved]

NARRATIVE: CASE EVENT DATE: 20240101
